FAERS Safety Report 9165717 (Version 1)
Quarter: 2013Q1

REPORT INFORMATION
  Report Type: Spontaneous
  Country: US (occurrence: None)
  Receive Date: 20130314
  Receipt Date: 20130314
  Transmission Date: 20140127
  Serious: No
  Sender: FDA-Public Use
  Company Number: None

PATIENT
  Age: 49 None
  Sex: Female
  Weight: 90.72 kg

DRUGS (1)
  1. NEULASTA [Suspect]
     Indication: CHEMOTHERAPY
     Route: 058
     Dates: start: 20130214

REACTIONS (5)
  - Loss of consciousness [None]
  - Headache [None]
  - Dizziness [None]
  - Head injury [None]
  - Limb injury [None]
